FAERS Safety Report 8345362-8 (Version None)
Quarter: 2012Q2

REPORT INFORMATION
  Report Type: 
  Country: None (occurrence: None)
  Receive Date: 20120508
  Receipt Date: 20120501
  Transmission Date: 20120825
  Serious: Yes (Other)
  Sender: FDA-Public Use
  Company Number: US-BAYER-2012-042737

PATIENT
  Sex: Male

DRUGS (1)
  1. RID 1-2-3 SYSTEM [Suspect]
     Indication: LICE INFESTATION
     Dosage: UNK
     Route: 061

REACTIONS (2)
  - HEADACHE [None]
  - CONVULSION [None]
